FAERS Safety Report 7919431-8 (Version None)
Quarter: 2011Q4

REPORT INFORMATION
  Report Type: 
  Country: None (occurrence: None)
  Receive Date: 20111116
  Receipt Date: 20111116
  Transmission Date: 20120403
  Serious: Yes (Hospitalization)
  Sender: FDA-Public Use
  Company Number: None

PATIENT
  Sex: Male
  Weight: 104.1 kg

DRUGS (3)
  1. CYTARABINE [Suspect]
     Dosage: 13350 MG
     Dates: end: 20110910
  2. TRETINOIN [Suspect]
     Dosage: 830 MG
     Dates: end: 20110920
  3. MITOXANTRONE HYDROCHLORIDE [Suspect]
     Dosage: 44.4 MG
     Dates: end: 20110910

REACTIONS (10)
  - CHILLS [None]
  - HEART RATE INCREASED [None]
  - PAIN IN JAW [None]
  - LOCAL SWELLING [None]
  - LYMPHADENOPATHY [None]
  - WHITE BLOOD CELL COUNT DECREASED [None]
  - INFECTION [None]
  - PYREXIA [None]
  - BLOOD PRESSURE SYSTOLIC DECREASED [None]
  - INFLAMMATION [None]
